FAERS Safety Report 10023489 (Version 1)
Quarter: 2013Q4

REPORT INFORMATION
  Report Type: Spontaneous
  Country: FR (occurrence: None)
  Receive Date: 20131231
  Receipt Date: 20131231
  Transmission Date: 20140711
  Serious: Yes (Other)
  Sender: FDA-Public Use
  Company Number: 2013SA126420

PATIENT
  Age: 61 Year
  Sex: Male

DRUGS (2)
  1. RIFAMPICIN [Suspect]
     Indication: PRODUCT USED FOR UNKNOWN INDICATION
     Dosage: (NOT OTHERWISE SPECIFIED)
     Route: 042
     Dates: start: 20131123, end: 20131125
  2. LEVETIRACETAM (LEVETIRACETAM) [Suspect]
     Indication: PRODUCT USED FOR UNKNOWN INDICATION
     Route: 048
     Dates: start: 20131107

REACTIONS (2)
  - Cholestasis [None]
  - Hyperbilirubinaemia [None]
